FAERS Safety Report 5200385-2 (Version None)
Quarter: 2007Q1

REPORT INFORMATION
  Report Type: 
  Country: None (occurrence: None)
  Receive Date: 20070105
  Receipt Date: 20061227
  Transmission Date: 20070707
  Serious: Yes (Hospitalization, Other)
  Sender: FDA-Public Use
  Company Number: US-PFIZER INC-2007000160

PATIENT
  Sex: Female
  Weight: 54.4 kg

DRUGS (8)
  1. BEXTRA [Suspect]
     Indication: NECK PAIN
     Route: 048
     Dates: start: 20020328, end: 20020915
  2. SYNTHROID [Concomitant]
  3. METHOTREXATE [Concomitant]
  4. PREDNISONE TAB [Concomitant]
  5. ZELNORM [Concomitant]
  6. METHOCARBAMOL [Concomitant]
  7. DICYCLOMINE [Concomitant]
  8. LIBRAX [Concomitant]

REACTIONS (1)
  - CEREBROVASCULAR ACCIDENT [None]
